FAERS Safety Report 9515168 (Version 1)
Quarter: 2013Q3

REPORT INFORMATION
  Report Type: Spontaneous
  Country: None (occurrence: US)
  Receive Date: 20130911
  Receipt Date: 20130911
  Transmission Date: 20140515
  Serious: No
  Sender: FDA-Public Use
  Company Number: US-TEVA-431208USA

PATIENT
  Age: 46 Year
  Sex: Female
  Weight: 101.7 kg

DRUGS (1)
  1. PLAN B ONE-STEP [Suspect]
     Indication: CONTRACEPTION
     Route: 048
     Dates: start: 20130831, end: 20130831

REACTIONS (2)
  - Abdominal pain [Unknown]
  - Back pain [Unknown]
